FAERS Safety Report 15092911 (Version 1)
Quarter: 2018Q2

REPORT INFORMATION
  Report Type: Spontaneous
  Country: US (occurrence: US)
  Receive Date: 20180629
  Receipt Date: 20180629
  Transmission Date: 20180711
  Serious: Yes (Death, Hospitalization, Other)
  Sender: FDA-Public Use
  Company Number: US-BRISTOL-MYERS SQUIBB COMPANY-BMS-2018-059275

PATIENT
  Age: 62 Year

DRUGS (2)
  1. YERVOY [Suspect]
     Active Substance: IPILIMUMAB
     Indication: MALIGNANT MELANOMA
     Dosage: 3 MG/KG, X 4 DOSES
     Route: 065
  2. OPDIVO [Suspect]
     Active Substance: NIVOLUMAB
     Indication: MALIGNANT MELANOMA
     Dosage: 1 MG/KG, X 4 DOSES
     Route: 065

REACTIONS (4)
  - Neuritis [Recovered/Resolved]
  - Death [Fatal]
  - Autoimmune haemolytic anaemia [Recovered/Resolved]
  - Hypoglycaemia [Recovered/Resolved]
